FAERS Safety Report 25235498 (Version 1)
Quarter: 2025Q2

REPORT INFORMATION
  Report Type: Spontaneous
  Country: US (occurrence: US)
  Receive Date: 20250424
  Receipt Date: 20250424
  Transmission Date: 20250716
  Serious: Yes (Death, Other)
  Sender: PFIZER
  Company Number: US-PFIZER INC-202500085584

PATIENT
  Age: 65 Year
  Sex: Female

DRUGS (10)
  1. IBRANCE [Suspect]
     Active Substance: PALBOCICLIB
     Dosage: 125MG PER ORAL (PO) ONCE DAILY (QD)
     Route: 048
     Dates: start: 20250417, end: 20250419
  2. FERROUS SULFATE [Concomitant]
     Active Substance: FERROUS SULFATE
  3. FLAX SEEDS [Concomitant]
     Active Substance: FLAX SEEDS
  4. ALBUTEROL [Concomitant]
     Active Substance: ALBUTEROL
  5. ANASTROZOLE [Concomitant]
     Active Substance: ANASTROZOLE
  6. DEXAMETHASONE [Concomitant]
     Active Substance: DEXAMETHASONE
  7. ELIQUIS [Concomitant]
     Active Substance: APIXABAN
  8. IBUPROFEN [Concomitant]
     Active Substance: IBUPROFEN
  9. VANIQA [GABAPENTIN] [Concomitant]
  10. CYANOCOBALAMIN [Concomitant]
     Active Substance: CYANOCOBALAMIN

REACTIONS (2)
  - Death [Fatal]
  - Malignant neoplasm progression [Not Recovered/Not Resolved]

NARRATIVE: CASE EVENT DATE: 20250419
